FAERS Safety Report 6470410-X (Version None)
Quarter: 2009Q4

REPORT INFORMATION
  Report Type: 
  Country: None (occurrence: None)
  Receive Date: 20091202
  Receipt Date: 20091202
  Transmission Date: 20100525
  Serious: Yes (Hospitalization)
  Sender: FDA-Public Use
  Company Number: None

PATIENT
  Age: 84 Year
  Sex: Male
  Weight: 81 kg

DRUGS (10)
  1. LINEZOLID [Suspect]
     Indication: OSTEOMYELITIS
     Dosage: 600MG TWICE DAILY ORAL
     Route: 048
     Dates: start: 20090629
  2. TAMSULOSIN [Concomitant]
  3. METOPROLOL [Concomitant]
  4. AMLODIPINE [Concomitant]
  5. LEVOTHYROXINE SODIUM [Concomitant]
  6. RAMIPRIL [Concomitant]
  7. ALLOPURINOL [Concomitant]
  8. SIMVASTATIN [Concomitant]
  9. ASPIRIN [Concomitant]
  10. APAP TAB [Concomitant]

REACTIONS (1)
  - CHEILITIS [None]
